FAERS Safety Report 10552337 (Version 1)
Quarter: 2014Q4

REPORT INFORMATION
  Report Type: Spontaneous
  Country: US (occurrence: None)
  Receive Date: 20141028
  Receipt Date: 20141028
  Transmission Date: 20150529
  Serious: Yes (Hospitalization)
  Sender: FDA-Public Use
  Company Number: None

PATIENT
  Age: 75 Year
  Sex: Male
  Weight: 84.1 kg

DRUGS (2)
  1. VINCRISTINE [Suspect]
     Active Substance: VINCRISTINE
     Indication: MANTLE CELL LYMPHOMA
     Dosage: 2 MG OTHER IV
     Route: 042
     Dates: start: 20140301, end: 20140728
  2. DOXORUBICIN [Suspect]
     Active Substance: DOXORUBICIN
     Dosage: 100 MG OTHER IV
     Route: 042
     Dates: start: 20140301, end: 20140728

REACTIONS (3)
  - Haemoglobin decreased [None]
  - Febrile neutropenia [None]
  - Leukopenia [None]

NARRATIVE: CASE EVENT DATE: 20140823
